FAERS Safety Report 25954332 (Version 1)
Quarter: 2025Q4

REPORT INFORMATION
  Report Type: Report from Study
  Country: US (occurrence: US)
  Receive Date: 20251023
  Receipt Date: 20251023
  Transmission Date: 20260117
  Serious: Yes (Hospitalization)
  Sender: ABBVIE
  Company Number: US-ABBVIE-6359922

PATIENT
  Age: 66 Year
  Sex: Male
  Weight: 42.6 kg

DRUGS (4)
  1. VYALEV [Suspect]
     Active Substance: FOSCARBIDOPA\FOSLEVODOPA
     Indication: Parkinson^s disease
     Dosage: 24 HOUR INFUSION
     Route: 058
     Dates: start: 20250212, end: 20250708
  2. VYALEV [Suspect]
     Active Substance: FOSCARBIDOPA\FOSLEVODOPA
     Dosage: FIRST ADMIN DATE: JUL 2025.?LAST ADMIN DATE: 2025
     Route: 058
  3. GABAPENTIN [Concomitant]
     Active Substance: GABAPENTIN
     Indication: Neuropathy peripheral
  4. MOTEGRITY [Concomitant]
     Active Substance: PRUCALOPRIDE SUCCINATE
     Indication: Constipation

REACTIONS (8)
  - Atrial fibrillation [Recovered/Resolved]
  - Catheter site cellulitis [Recovered/Resolved]
  - Infusion site infection [Not Recovered/Not Resolved]
  - Infusion site cellulitis [Recovered/Resolved]
  - Off label use [Unknown]
  - Infusion site nodule [Recovered/Resolved]
  - Blood pressure decreased [Recovered/Resolved]
  - Infusion site nodule [Recovered/Resolved]

NARRATIVE: CASE EVENT DATE: 20250101
